FAERS Safety Report 5605751-9 (Version None)
Quarter: 2008Q1

REPORT INFORMATION
  Report Type: 
  Country: None (occurrence: None)
  Receive Date: 20080129
  Receipt Date: 20080117
  Transmission Date: 20080703
  Serious: Yes (Hospitalization, Other)
  Sender: FDA-Public Use
  Company Number: DE-BAYER-200810948GPV

PATIENT
  Age: 48 Year
  Sex: Male
  Weight: 100 kg

DRUGS (1)
  1. NEXAVAR [Suspect]
     Indication: RENAL CELL CARCINOMA
     Route: 065
     Dates: start: 20061101

REACTIONS (4)
  - FACTOR VIII DEFICIENCY [None]
  - HAEMOPHILIA [None]
  - MOUTH HAEMORRHAGE [None]
  - TONGUE HAEMORRHAGE [None]
